FAERS Safety Report 22084373 (Version 1)
Quarter: 2023Q1

REPORT INFORMATION
  Report Type: Spontaneous
  Country: CN (occurrence: CN)
  Receive Date: 20230310
  Receipt Date: 20230310
  Transmission Date: 20230417
  Serious: Yes (Other)
  Sender: FDA-Public Use
  Company Number: CN-009507513-2303CHN002069

PATIENT
  Age: 77 Year
  Sex: Male

DRUGS (4)
  1. CILASTATIN SODIUM\IMIPENEM [Suspect]
     Active Substance: CILASTATIN SODIUM\IMIPENEM
     Indication: Septic shock
     Dosage: 1G, BID
     Route: 041
     Dates: start: 20230225, end: 20230227
  2. CILASTATIN SODIUM\IMIPENEM [Suspect]
     Active Substance: CILASTATIN SODIUM\IMIPENEM
     Indication: Toxic shock syndrome
  3. CILASTATIN SODIUM\IMIPENEM [Suspect]
     Active Substance: CILASTATIN SODIUM\IMIPENEM
     Indication: Abdominal infection
  4. SODIUM CHLORIDE [Concomitant]
     Active Substance: SODIUM CHLORIDE
     Indication: Medication dilution
     Dosage: 100ML, BID
     Route: 041
     Dates: start: 20230225, end: 20230227

REACTIONS (3)
  - Delirium [Recovering/Resolving]
  - Dysphoria [Unknown]
  - Product use issue [Unknown]

NARRATIVE: CASE EVENT DATE: 20230225
